FAERS Safety Report 7983250-7 (Version None)
Quarter: 2011Q4

REPORT INFORMATION
  Report Type: 
  Country: None (occurrence: None)
  Receive Date: 20111215
  Receipt Date: 20111207
  Transmission Date: 20120403
  Serious: Yes (Hospitalization)
  Sender: FDA-Public Use
  Company Number: PHHY2011JP107715

PATIENT
  Age: 44 Year
  Sex: Female

DRUGS (9)
  1. FUROSEMIDE [Suspect]
     Indication: ASCITES
     Dosage: 40 MG, UNK
     Dates: start: 20090601
  2. SPIRONOLACTONE [Concomitant]
     Dosage: 25 MG, UNK
     Route: 048
  3. CISPLATIN [Suspect]
     Indication: GASTRIC CANCER
     Dosage: 80 MG, UNK
     Route: 041
     Dates: start: 20090601, end: 20100210
  4. DICLOFENAC SODIUM [Concomitant]
     Dosage: 7.5 MG, UNK
     Route: 048
  5. ESTAZOLAM [Concomitant]
     Dosage: 2 MG, UNK
     Route: 048
  6. ZOLEDRONIC [Suspect]
     Indication: METASTASES TO BONE
     Dosage: 4 MG, UNK
     Route: 041
     Dates: start: 20090601
  7. TS 1 [Concomitant]
     Indication: GASTRIC CANCER
     Dosage: 100 MG, UNK
     Route: 048
  8. SENNOSIDE [Concomitant]
     Dosage: 0.5 MG, UNK
     Route: 048
  9. OMEPRAZOLE [Concomitant]
     Dosage: 20 MG, UNK
     Route: 048

REACTIONS (11)
  - DEHYDRATION [None]
  - RENAL TUBULAR DISORDER [None]
  - HYPOCALCAEMIA [None]
  - MALAISE [None]
  - HYPOPHOSPHATAEMIA [None]
  - METABOLIC ALKALOSIS [None]
  - DECREASED APPETITE [None]
  - HYPOMAGNESAEMIA [None]
  - NAUSEA [None]
  - BONE MARROW FAILURE [None]
  - HYPOKALAEMIA [None]
